FAERS Safety Report 24747003 (Version 1)
Quarter: 2024Q4

REPORT INFORMATION
  Report Type: Spontaneous
  Country: US (occurrence: US)
  Receive Date: 20241218
  Receipt Date: 20241218
  Transmission Date: 20250114
  Serious: No
  Sender: UROGEN PHARMA
  Company Number: US-UROGEN PHARMA LTD.-2024-UGN-000158

PATIENT

DRUGS (6)
  1. JELMYTO [Suspect]
     Active Substance: MITOMYCIN
     Indication: Transitional cell cancer of the renal pelvis and ureter
     Dosage: 11 MILLILITER, ONCE A WEEK
     Dates: start: 20240920, end: 20240920
  2. JELMYTO [Suspect]
     Active Substance: MITOMYCIN
     Dosage: 11 MILLILITER, ONCE A WEEK
     Dates: start: 20240927, end: 20240927
  3. JELMYTO [Suspect]
     Active Substance: MITOMYCIN
     Dosage: 11 MILLILITER, ONCE A WEEK
     Dates: start: 20241004, end: 20241004
  4. JELMYTO [Suspect]
     Active Substance: MITOMYCIN
     Dosage: 11 MILLILITER, ONCE A WEEK
     Dates: start: 20241011, end: 20241011
  5. JELMYTO [Suspect]
     Active Substance: MITOMYCIN
     Dosage: 11 MILLILITER, ONCE A WEEK
     Dates: start: 20241018, end: 20241018
  6. JELMYTO [Suspect]
     Active Substance: MITOMYCIN
     Dosage: 11 MILLILITER, ONCE A WEEK
     Dates: start: 20241025, end: 20241025

REACTIONS (2)
  - Rash [Recovered/Resolved]
  - Pyrexia [Recovered/Resolved]

NARRATIVE: CASE EVENT DATE: 20241001
